FAERS Safety Report 7068159-8 (Version None)
Quarter: 2010Q4

REPORT INFORMATION
  Report Type: 
  Country: None (occurrence: None)
  Receive Date: 20101028
  Receipt Date: 20100914
  Transmission Date: 20110411
  Serious: Yes (Death, Other)
  Sender: FDA-Public Use
  Company Number: US-BAXTER-2010BH008218

PATIENT
  Age: 12 Year
  Sex: Female
  Weight: 30 kg

DRUGS (95)
  1. HEPARIN SODIUM INJECTION [Suspect]
     Indication: INTRACARDIAC THROMBUS
     Route: 042
     Dates: start: 20080126, end: 20080126
  2. HEPARIN SODIUM INJECTION [Suspect]
     Indication: VENTRICULAR ASSIST DEVICE INSERTION
     Route: 042
     Dates: start: 20080126, end: 20080126
  3. HEPARIN SODIUM INJECTION [Suspect]
     Indication: INTRAVENOUS CATHETER MANAGEMENT
     Route: 042
     Dates: start: 20080126, end: 20080126
  4. HEPARIN SODIUM INJECTION [Suspect]
     Route: 042
     Dates: start: 20080208, end: 20080208
  5. HEPARIN SODIUM INJECTION [Suspect]
     Route: 042
     Dates: start: 20080208, end: 20080208
  6. HEPARIN SODIUM INJECTION [Suspect]
     Route: 042
     Dates: start: 20080208, end: 20080208
  7. HEPARIN SODIUM INJECTION [Suspect]
     Route: 042
     Dates: start: 20080214, end: 20080214
  8. HEPARIN SODIUM INJECTION [Suspect]
     Route: 042
     Dates: start: 20080214, end: 20080214
  9. HEPARIN SODIUM INJECTION [Suspect]
     Route: 042
     Dates: start: 20080214, end: 20080214
  10. HEPARIN SODIUM INJECTION [Suspect]
     Route: 050
     Dates: start: 20080215, end: 20080215
  11. HEPARIN SODIUM INJECTION [Suspect]
     Route: 050
     Dates: start: 20080215, end: 20080215
  12. HEPARIN SODIUM INJECTION [Suspect]
     Route: 050
     Dates: start: 20080215, end: 20080215
  13. HEPARIN SODIUM INJECTION [Suspect]
     Route: 042
     Dates: start: 20080215, end: 20080215
  14. HEPARIN SODIUM INJECTION [Suspect]
     Route: 042
     Dates: start: 20080215, end: 20080215
  15. HEPARIN SODIUM INJECTION [Suspect]
     Route: 042
     Dates: start: 20080215, end: 20080215
  16. HEPARIN SODIUM INJECTION [Suspect]
     Route: 042
     Dates: start: 20080216, end: 20080216
  17. HEPARIN SODIUM INJECTION [Suspect]
     Route: 042
     Dates: start: 20080216, end: 20080216
  18. HEPARIN SODIUM INJECTION [Suspect]
     Route: 042
     Dates: start: 20080216, end: 20080216
  19. HEPARIN SODIUM INJECTION [Suspect]
     Route: 050
     Dates: start: 20080218, end: 20080218
  20. HEPARIN SODIUM INJECTION [Suspect]
     Route: 050
     Dates: start: 20080218, end: 20080218
  21. HEPARIN SODIUM INJECTION [Suspect]
     Route: 050
     Dates: start: 20080218, end: 20080218
  22. HEPARIN SODIUM INJECTION [Suspect]
     Route: 042
     Dates: start: 20080218, end: 20080218
  23. HEPARIN SODIUM INJECTION [Suspect]
     Route: 042
     Dates: start: 20080218, end: 20080218
  24. HEPARIN SODIUM INJECTION [Suspect]
     Route: 042
     Dates: start: 20080218, end: 20080218
  25. HEPARIN SODIUM INJECTION [Suspect]
     Route: 042
     Dates: start: 20080302, end: 20080302
  26. HEPARIN SODIUM INJECTION [Suspect]
     Route: 042
     Dates: start: 20080302, end: 20080302
  27. HEPARIN SODIUM INJECTION [Suspect]
     Route: 042
     Dates: start: 20080302, end: 20080302
  28. HEPARIN SODIUM INJECTION [Suspect]
     Route: 042
     Dates: start: 20080320, end: 20080320
  29. HEPARIN SODIUM INJECTION [Suspect]
     Route: 042
     Dates: start: 20080320, end: 20080320
  30. HEPARIN SODIUM INJECTION [Suspect]
     Route: 042
     Dates: start: 20080320, end: 20080320
  31. HEPARIN SODIUM INJECTION [Suspect]
     Route: 050
     Dates: start: 20080302, end: 20080302
  32. HEPARIN SODIUM INJECTION [Suspect]
     Route: 050
     Dates: start: 20080302, end: 20080302
  33. HEPARIN SODIUM INJECTION [Suspect]
     Route: 050
     Dates: start: 20080302, end: 20080302
  34. HEPARIN SODIUM 5,000 UNITS IN DEXTROSE 5% [Suspect]
     Indication: PRODUCT USED FOR UNKNOWN INDICATION
     Route: 042
     Dates: start: 20080126, end: 20080207
  35. HEPARIN SODIUM 5,000 UNITS IN DEXTROSE 5% [Suspect]
     Route: 042
     Dates: start: 20080212, end: 20080328
  36. HEPARIN SODIUM 10,000 UNITS IN SODIUM CHLORIDE 0.45% [Suspect]
     Indication: PRODUCT USED FOR UNKNOWN INDICATION
     Route: 042
     Dates: start: 20080126, end: 20080201
  37. DIGOXIN [Concomitant]
     Indication: PRODUCT USED FOR UNKNOWN INDICATION
  38. ASPIRIN [Concomitant]
     Indication: PRODUCT USED FOR UNKNOWN INDICATION
  39. ACETAMINOPHEN [Concomitant]
     Indication: PRODUCT USED FOR UNKNOWN INDICATION
  40. MILRINONE [Concomitant]
     Indication: PRODUCT USED FOR UNKNOWN INDICATION
     Route: 065
  41. DOBUTAMINE [Concomitant]
     Indication: PRODUCT USED FOR UNKNOWN INDICATION
     Route: 042
  42. LIDOCAINE HYDROCHLORIDE IN PLASTIC CONTAINER [Concomitant]
     Indication: PRODUCT USED FOR UNKNOWN INDICATION
     Route: 042
  43. MORPHINE [Concomitant]
     Indication: PRODUCT USED FOR UNKNOWN INDICATION
     Route: 042
  44. MIDAZOLAM [Concomitant]
     Indication: PRODUCT USED FOR UNKNOWN INDICATION
     Route: 042
  45. CALCIUM GLUCONATE [Concomitant]
     Indication: PRODUCT USED FOR UNKNOWN INDICATION
     Route: 042
  46. SODIUM CHLORIDE [Concomitant]
     Indication: PRODUCT USED FOR UNKNOWN INDICATION
     Route: 065
  47. VECURONIUM BROMIDE [Concomitant]
     Indication: PRODUCT USED FOR UNKNOWN INDICATION
     Route: 042
  48. ALUMINUM HYDROXIDE GEL [Concomitant]
     Indication: PRODUCT USED FOR UNKNOWN INDICATION
     Route: 048
  49. SEVELAMER [Concomitant]
     Indication: PRODUCT USED FOR UNKNOWN INDICATION
     Route: 048
  50. FENTANYL [Concomitant]
     Indication: PRODUCT USED FOR UNKNOWN INDICATION
     Route: 042
  51. FUROSEMIDE [Concomitant]
     Indication: PRODUCT USED FOR UNKNOWN INDICATION
     Route: 042
  52. DEXTROSE W/POTASSIUM CHLORIDE AND NACL [Concomitant]
     Indication: PRODUCT USED FOR UNKNOWN INDICATION
     Route: 042
  53. CHLOROTHIAZIDE [Concomitant]
     Indication: PRODUCT USED FOR UNKNOWN INDICATION
     Route: 042
  54. LEVOCARNITINE [Concomitant]
     Indication: PRODUCT USED FOR UNKNOWN INDICATION
     Route: 042
  55. CALCITRIOL [Concomitant]
     Indication: PRODUCT USED FOR UNKNOWN INDICATION
     Route: 042
  56. DOPAMINE [Concomitant]
     Indication: PRODUCT USED FOR UNKNOWN INDICATION
     Route: 042
  57. MAGNESIUM SULFATE [Concomitant]
     Indication: PRODUCT USED FOR UNKNOWN INDICATION
     Route: 042
     Dates: start: 20080126, end: 20080126
  58. PETROLATUM [Concomitant]
     Indication: PRODUCT USED FOR UNKNOWN INDICATION
     Route: 065
  59. VANCOMYCIN [Concomitant]
     Indication: PRODUCT USED FOR UNKNOWN INDICATION
     Route: 042
  60. CEFUROXIME [Concomitant]
     Indication: PRODUCT USED FOR UNKNOWN INDICATION
     Route: 042
  61. ROCURONIUM BROMIDE [Concomitant]
     Indication: PRODUCT USED FOR UNKNOWN INDICATION
     Route: 042
  62. HYDROCORTISONE [Concomitant]
     Indication: PRODUCT USED FOR UNKNOWN INDICATION
     Route: 042
  63. RANITIDINE [Concomitant]
     Indication: PRODUCT USED FOR UNKNOWN INDICATION
     Route: 042
  64. SPIRONOLACTONE [Concomitant]
     Indication: PRODUCT USED FOR UNKNOWN INDICATION
     Route: 048
  65. EPINEPHRINE [Concomitant]
     Indication: PRODUCT USED FOR UNKNOWN INDICATION
     Route: 042
  66. IBUPROFEN [Concomitant]
     Indication: PRODUCT USED FOR UNKNOWN INDICATION
     Route: 048
  67. SODIUM BICARBONATE [Concomitant]
     Indication: PRODUCT USED FOR UNKNOWN INDICATION
     Route: 042
     Dates: start: 20080206, end: 20080206
  68. BUMETANIDE [Concomitant]
     Indication: PRODUCT USED FOR UNKNOWN INDICATION
     Route: 042
  69. CALCIUM CHLORIDE [Concomitant]
     Indication: PRODUCT USED FOR UNKNOWN INDICATION
     Route: 042
     Dates: start: 20080207, end: 20080207
  70. DEXAMETHASONE [Concomitant]
     Indication: PRODUCT USED FOR UNKNOWN INDICATION
     Route: 042
  71. AMICAR [Concomitant]
     Indication: PRODUCT USED FOR UNKNOWN INDICATION
     Route: 042
  72. CEFTAZIDIME [Concomitant]
     Indication: PRODUCT USED FOR UNKNOWN INDICATION
     Route: 042
  73. GELFOAM [Concomitant]
     Indication: PRODUCT USED FOR UNKNOWN INDICATION
     Route: 061
  74. THROMBIN LOCAL SOLUTION [Concomitant]
     Indication: PRODUCT USED FOR UNKNOWN INDICATION
     Route: 061
  75. FLUCONAZOLE [Concomitant]
     Indication: PRODUCT USED FOR UNKNOWN INDICATION
     Route: 042
  76. PANTOPRAZOLE [Concomitant]
     Indication: PRODUCT USED FOR UNKNOWN INDICATION
     Route: 042
  77. ACTIVASE [Concomitant]
     Indication: INTRAVENOUS CATHETER MANAGEMENT
     Route: 065
  78. NICARDIPINE HYDROCHLORIDE [Concomitant]
     Indication: PRODUCT USED FOR UNKNOWN INDICATION
     Route: 042
  79. VIAGRA [Concomitant]
     Indication: PRODUCT USED FOR UNKNOWN INDICATION
     Route: 048
  80. METHADONE [Concomitant]
     Indication: PRODUCT USED FOR UNKNOWN INDICATION
     Route: 042
  81. LORAZEPAM [Concomitant]
     Indication: PRODUCT USED FOR UNKNOWN INDICATION
     Route: 042
  82. CEFAZOLIN [Concomitant]
     Indication: PRODUCT USED FOR UNKNOWN INDICATION
     Route: 042
  83. AMIKACIN [Concomitant]
     Indication: PRODUCT USED FOR UNKNOWN INDICATION
     Route: 042
  84. TISSEEL KIT [Concomitant]
     Indication: PRODUCT USED FOR UNKNOWN INDICATION
     Route: 061
  85. AMIODARONE [Concomitant]
     Indication: PRODUCT USED FOR UNKNOWN INDICATION
     Route: 042
  86. PENTOBARBITAL CAP [Concomitant]
     Indication: PRODUCT USED FOR UNKNOWN INDICATION
     Route: 042
  87. EPOGEN [Concomitant]
     Indication: PRODUCT USED FOR UNKNOWN INDICATION
     Route: 042
  88. AFRIN [Concomitant]
     Indication: PRODUCT USED FOR UNKNOWN INDICATION
     Route: 045
  89. METOCLOPRAMIDE [Concomitant]
     Indication: PRODUCT USED FOR UNKNOWN INDICATION
     Route: 042
  90. NYSTATIN [Concomitant]
     Indication: PRODUCT USED FOR UNKNOWN INDICATION
     Route: 048
  91. TOBRAMYCIN [Concomitant]
     Indication: PRODUCT USED FOR UNKNOWN INDICATION
     Route: 055
  92. AVITENE [Concomitant]
     Indication: PRODUCT USED FOR UNKNOWN INDICATION
     Route: 061
  93. BACITRACIN [Concomitant]
     Indication: PRODUCT USED FOR UNKNOWN INDICATION
     Route: 061
  94. PULMOZYME [Concomitant]
     Indication: PRODUCT USED FOR UNKNOWN INDICATION
     Route: 055
  95. ANTICOAGULANT SODIUM CITRATE SOLUTION [Concomitant]
     Indication: PERITONEAL DIALYSIS
     Route: 042

REACTIONS (23)
  - ASTHENIA [None]
  - CARDIOMYOPATHY [None]
  - DYSPNOEA [None]
  - ENTEROBACTER PNEUMONIA [None]
  - EPISTAXIS [None]
  - HEART RATE DECREASED [None]
  - HEPATIC FUNCTION ABNORMAL [None]
  - HYPERGLYCAEMIA [None]
  - HYPERTENSION [None]
  - HYPOTENSION [None]
  - ILEUS [None]
  - INTESTINAL INFARCTION [None]
  - MEDIASTINAL HAEMORRHAGE [None]
  - METABOLIC ACIDOSIS [None]
  - PERICARDIAL EFFUSION [None]
  - PYREXIA [None]
  - RECTAL HAEMORRHAGE [None]
  - RENAL FAILURE [None]
  - SEPSIS [None]
  - THROMBOSIS [None]
  - TORSADE DE POINTES [None]
  - VENTRICULAR FIBRILLATION [None]
  - VENTRICULAR TACHYCARDIA [None]
